FAERS Safety Report 4381429-7 (Version None)
Quarter: 2004Q2

REPORT INFORMATION
  Report Type: 
  Country: None (occurrence: None)
  Receive Date: 20040617
  Receipt Date: 20040617
  Transmission Date: 20050107
  Serious: Yes (Hospitalization)
  Sender: FDA-Public Use
  Company Number: None

PATIENT
  Age: 68 Year
  Sex: Male
  Weight: 98.8 kg

DRUGS (13)
  1. EMCYT [Suspect]
     Indication: PROSTATE CANCER
     Dosage: 280 MG TID, D 1-3
     Dates: start: 20040509, end: 20040604
  2. COUMADIN [Concomitant]
  3. TRAMADOL [Concomitant]
  4. DYAZIDE [Concomitant]
  5. VIOXX [Concomitant]
  6. METFORMIN HCL [Concomitant]
  7. NORVASC [Concomitant]
  8. MEGACE [Concomitant]
  9. LUPRON [Concomitant]
  10. ASPIRIN [Concomitant]
  11. CALCIUM [Concomitant]
  12. VITAMIN B COMPLEX CAP [Concomitant]
  13. VITAMIN B COMPLEX CAP [Concomitant]

REACTIONS (10)
  - ACTIVATED PARTIAL THROMBOPLASTIN TIME PROLONGED [None]
  - BLOOD GLUCOSE INCREASED [None]
  - DEEP VEIN THROMBOSIS [None]
  - HAEMATOCRIT DECREASED [None]
  - HAEMOGLOBIN DECREASED [None]
  - INTERNATIONAL NORMALISED RATIO DECREASED [None]
  - PCO2 DECREASED [None]
  - PROTHROMBIN LEVEL DECREASED [None]
  - PROTHROMBIN TIME PROLONGED [None]
  - RED BLOOD CELL COUNT DECREASED [None]
